FAERS Safety Report 13187333 (Version 1)
Quarter: 2017Q1

REPORT INFORMATION
  Report Type: Spontaneous
  Country: US (occurrence: US)
  Receive Date: 20170206
  Receipt Date: 20170206
  Transmission Date: 20170428
  Serious: Yes (Hospitalization)
  Sender: FDA-Public Use
  Company Number: US-STRIDES ARCOLAB LIMITED-2017SP001140

PATIENT

DRUGS (4)
  1. CARISOPRODOL. [Suspect]
     Active Substance: CARISOPRODOL
     Dosage: 350 MG, EVERY 6 HRS
     Route: 048
  2. CARISOPRODOL. [Suspect]
     Active Substance: CARISOPRODOL
     Indication: PRODUCT USED FOR UNKNOWN INDICATION
     Dosage: 10-30 TABLETS, PER DAY
     Route: 048
  3. CARISOPRODOL. [Suspect]
     Active Substance: CARISOPRODOL
     Dosage: 15 TABLETS, SINGLE
     Route: 048
  4. CARISOPRODOL. [Suspect]
     Active Substance: CARISOPRODOL
     Dosage: 350 MG, EVERY 12 HRS

REACTIONS (16)
  - Overdose [Unknown]
  - Drug withdrawal syndrome [Unknown]
  - Agitation [Recovered/Resolved]
  - Loss of consciousness [Unknown]
  - Tachypnoea [Unknown]
  - Systolic hypertension [Unknown]
  - Hypoxia [Recovered/Resolved]
  - Tachycardia [Unknown]
  - Vomiting [Unknown]
  - Drug dependence [Unknown]
  - Respiratory distress [Unknown]
  - Aggression [Recovered/Resolved]
  - Seizure [Recovered/Resolved]
  - Cyanosis [Unknown]
  - Muscle twitching [Recovered/Resolved]
  - Drug abuse [Unknown]
